FAERS Safety Report 5930382-0 (Version None)
Quarter: 2008Q4

REPORT INFORMATION
  Report Type: 
  Country: None (occurrence: None)
  Receive Date: 20081021
  Receipt Date: 20081015
  Transmission Date: 20090506
  Serious: Yes (Hospitalization)
  Sender: FDA-Public Use
  Company Number: 035413

PATIENT
  Age: 19 Year
  Sex: Female
  Weight: 54.4 kg

DRUGS (2)
  1. PLAN B [Suspect]
     Indication: CONTRACEPTION
     Dosage: 1 TABLET, SINGLE, ORAL
     Route: 048
     Dates: start: 20080920, end: 20080920
  2. LOESTRIN 1.5/30 [Concomitant]

REACTIONS (5)
  - BIPOLAR DISORDER [None]
  - BREAST DISCHARGE [None]
  - BREAST TENDERNESS [None]
  - MENSTRUATION DELAYED [None]
  - MENSTRUATION IRREGULAR [None]
